FAERS Safety Report 19385209 (Version 2)
Quarter: 2022Q4

REPORT INFORMATION
  Report Type: Spontaneous
  Country: DE (occurrence: DE)
  Receive Date: 20210608
  Receipt Date: 20221017
  Transmission Date: 20230113
  Serious: Yes (Hospitalization)
  Sender: FDA-Public Use
  Company Number: DE-ADRED-06445-01

PATIENT
  Age: 62 Year
  Sex: Female

DRUGS (9)
  1. JARDIANCE [Suspect]
     Active Substance: EMPAGLIFLOZIN
     Indication: Product used for unknown indication
     Route: 048
  2. INSULIN DETEMIR [Suspect]
     Active Substance: INSULIN DETEMIR
     Indication: Product used for unknown indication
     Dosage: 36 IU, 0-0-1-0, INJECTION/INFUSION SOLUTION
     Route: 058
  3. TRULICITY [Suspect]
     Active Substance: DULAGLUTIDE
     Indication: Product used for unknown indication
     Dosage: 1.5 MG, WEEKLY, INJECTION/INFUSION SOLUTION
     Route: 058
  4. LEVOTHYROXINE SODIUM [Concomitant]
     Active Substance: LEVOTHYROXINE SODIUM
     Indication: Product used for unknown indication
     Route: 048
  5. moxonidin-1A Pharma 4mg [Concomitant]
     Indication: Product used for unknown indication
     Route: 048
  6. lansoprazol-1A Pharma 30mg [Concomitant]
     Indication: Product used for unknown indication
     Route: 048
  7. Atorvastatin10 mg docpharm Filmtabletten [Concomitant]
     Indication: Product used for unknown indication
     Route: 048
  8. nebivolol AL 5mg [Concomitant]
     Indication: Product used for unknown indication
     Route: 048
  9. valsartan-1A Pharma 320mg [Concomitant]
     Indication: Product used for unknown indication
     Route: 048

REACTIONS (3)
  - Product monitoring error [Unknown]
  - Erysipelas [Unknown]
  - Hyperglycaemia [Unknown]
